FAERS Safety Report 10357562 (Version 1)
Quarter: 2014Q3

REPORT INFORMATION
  Report Type: Spontaneous
  Country: US (occurrence: US)
  Receive Date: 20140801
  Receipt Date: 20140801
  Transmission Date: 20150326
  Serious: Yes (Other)
  Sender: FDA-Public Use
  Company Number: US-BAYER-2014-112466

PATIENT
  Age: 54 Year
  Sex: Female

DRUGS (1)
  1. CIPROFLOXACIN. [Suspect]
     Active Substance: CIPROFLOXACIN
     Indication: CYSTITIS

REACTIONS (8)
  - Septic shock [None]
  - Renal failure [Recovering/Resolving]
  - Drug ineffective [None]
  - Emphysematous pyelonephritis [Recovering/Resolving]
  - Sepsis [None]
  - Pathogen resistance [None]
  - Diabetic ketoacidosis [None]
  - Pneumoperitoneum [None]
